FAERS Safety Report 6040137-7 (Version None)
Quarter: 2009Q1

REPORT INFORMATION
  Report Type: 
  Country: None (occurrence: None)
  Receive Date: 20090116
  Receipt Date: 20071220
  Transmission Date: 20090719
  Serious: Yes (Other)
  Sender: FDA-Public Use
  Company Number: US-BRISTOL-MYERS SQUIBB COMPANY-14021059

PATIENT
  Age: 30 Year
  Sex: Female
  Weight: 168 kg

DRUGS (9)
  1. ABILIFY [Suspect]
     Indication: BIPOLAR DISORDER
     Dosage: INCREASED TO 10MG
     Route: 048
  2. ABILIFY [Suspect]
     Indication: MANIA
     Dosage: INCREASED TO 10MG
     Route: 048
  3. ACTOS [Concomitant]
  4. HYDROCHLOROTHIAZIDE [Concomitant]
  5. CLONOPIN [Concomitant]
  6. SINGULAIR [Concomitant]
  7. BENADRYL [Concomitant]
  8. ASPIRIN [Concomitant]
  9. MICARDIS [Concomitant]

REACTIONS (2)
  - BLOOD GLUCOSE INCREASED [None]
  - BLOOD PRESSURE INCREASED [None]
